FAERS Safety Report 10516489 (Version 1)
Quarter: 2014Q3

REPORT INFORMATION
  Report Type: Spontaneous
  Country: US (occurrence: None)
  Receive Date: 20140926
  Receipt Date: 20140926
  Transmission Date: 20150326
  Serious: No
  Sender: FDA-Public Use
  Company Number: 1000069841

PATIENT
  Sex: Female

DRUGS (1)
  1. LINZESS [Suspect]
     Active Substance: LINACLOTIDE
     Indication: ABDOMINAL ADHESIONS
     Dosage: 290 MCG (290 MCG, 1 IN 1 D) ORAL
     Route: 048
     Dates: start: 20140812

REACTIONS (10)
  - Pyrexia [None]
  - Asthenia [None]
  - Tremor [None]
  - Hypoaesthesia [None]
  - Nausea [None]
  - Pain [None]
  - Diarrhoea [None]
  - Palpitations [None]
  - Chest pain [None]
  - Off label use [None]

NARRATIVE: CASE EVENT DATE: 20140812
